FAERS Safety Report 17127367 (Version 5)
Quarter: 2021Q1

REPORT INFORMATION
  Report Type: Spontaneous
  Country: FR (occurrence: FR)
  Receive Date: 20191209
  Receipt Date: 20210309
  Transmission Date: 20210419
  Serious: Yes (Hospitalization, Other)
  Sender: FDA-Public Use
  Company Number: FR-AUROBINDO-AUR-APL-2019-103586

PATIENT
  Age: 64 Year
  Sex: Female

DRUGS (7)
  1. FORMOTEROL [Interacting]
     Active Substance: FORMOTEROL
     Indication: ASTHMA
     Dosage: UNK
     Route: 055
  2. RITONAVIR. [Interacting]
     Active Substance: RITONAVIR
     Indication: HIV INFECTION
     Dosage: UNK
     Route: 065
  3. BUDESONIDE. [Interacting]
     Active Substance: BUDESONIDE
     Indication: ASTHMA
  4. ATAZANAVIR. [Suspect]
     Active Substance: ATAZANAVIR
     Indication: HIV INFECTION
     Dosage: UNK
     Route: 065
  5. BUDESONIDE. [Interacting]
     Active Substance: BUDESONIDE
     Indication: ASTHMA
     Dosage: UNK
     Route: 055
  6. EMTRICITABINE AND TENOFOVIR [Interacting]
     Active Substance: EMTRICITABINE\TENOFOVIR
     Indication: HIV INFECTION
     Dosage: UNK
     Route: 065
  7. FORMOTEROL [Interacting]
     Active Substance: FORMOTEROL
     Indication: ASTHMA

REACTIONS (3)
  - Drug interaction [Unknown]
  - Product administration error [Unknown]
  - Cushing^s syndrome [Unknown]
